FAERS Safety Report 7047171-9 (Version None)
Quarter: 2010Q4

REPORT INFORMATION
  Report Type: 
  Country: None (occurrence: None)
  Receive Date: 20101014
  Receipt Date: 20101014
  Transmission Date: 20110411
  Serious: No
  Sender: FDA-Public Use
  Company Number: None

PATIENT
  Sex: Male
  Weight: 43 kg

DRUGS (3)
  1. MERCAPTOPURINE [Suspect]
     Dosage: 1500 MG
     Dates: end: 20100805
  2. METHOTREXATE [Suspect]
     Dosage: 65 MG,15 MG IT AND  50 MG IPO
     Dates: end: 20100722
  3. VINCRISTINE SULFATE [Suspect]
     Dosage: 1.9 MG
     Dates: end: 20100722

REACTIONS (2)
  - HYPERBILIRUBINAEMIA [None]
  - HYPERGLYCAEMIA [None]
